FAERS Safety Report 6687926-3 (Version None)
Quarter: 2010Q2

REPORT INFORMATION
  Report Type: 
  Country: None (occurrence: None)
  Receive Date: 20100420
  Receipt Date: 20100409
  Transmission Date: 20101027
  Serious: Yes (Other)
  Sender: FDA-Public Use
  Company Number: JP-JNJFOC-20100308108

PATIENT
  Sex: Male
  Weight: 27 kg

DRUGS (11)
  1. CONCERTA [Suspect]
     Indication: ATTENTION DEFICIT/HYPERACTIVITY DISORDER
     Route: 048
  2. CONCERTA [Suspect]
     Route: 048
  3. FLUVOXAMINE MALEATE [Suspect]
     Indication: DRUG USE FOR UNKNOWN INDICATION
     Route: 048
  4. FLUVOXAMINE MALEATE [Suspect]
     Route: 048
  5. FLUVOXAMINE MALEATE [Suspect]
     Route: 048
  6. DEPAKENE [Suspect]
     Indication: EPILEPSY
     Route: 048
  7. DEPAKENE [Suspect]
     Route: 048
  8. DEPAKENE [Suspect]
     Route: 048
  9. DEPAKENE [Suspect]
     Route: 048
  10. SELENICA-R [Suspect]
     Indication: FEBRILE CONVULSION
     Route: 048
  11. RISPERDAL [Concomitant]
     Route: 048

REACTIONS (4)
  - BLOOD PRESSURE DECREASED [None]
  - DECREASED APPETITE [None]
  - EPILEPSY [None]
  - TIC [None]
